FAERS Safety Report 5497876-6 (Version None)
Quarter: 2007Q4

REPORT INFORMATION
  Report Type: 
  Country: None (occurrence: None)
  Receive Date: 20071025
  Receipt Date: 20071015
  Transmission Date: 20080405
  Serious: Yes (Other)
  Sender: FDA-Public Use
  Company Number: US-SHR-US-2007-039046

PATIENT
  Age: 51 Year
  Sex: Female

DRUGS (6)
  1. BETASERON [Suspect]
     Dosage: 8 MIU, EVERY 2D
     Route: 058
     Dates: start: 19991107
  2. NORVASC [Concomitant]
  3. HYDROCHLOROTHIAZIDE [Concomitant]
  4. ZYRTEC [Concomitant]
     Indication: CHRONIC SINUSITIS
  5. SYNTHROID [Concomitant]
     Indication: THYROID DISORDER
  6. TALWIN [Concomitant]
     Indication: PAIN

REACTIONS (3)
  - CHRONIC OBSTRUCTIVE PULMONARY DISEASE [None]
  - HAIR FOLLICLE TUMOUR BENIGN [None]
  - RENAL DISORDER [None]
